FAERS Safety Report 17855617 (Version 1)
Quarter: 2020Q2

REPORT INFORMATION
  Report Type: Spontaneous
  Country: CN (occurrence: CN)
  Receive Date: 20200603
  Receipt Date: 20200603
  Transmission Date: 20200714
  Serious: Yes (Other)
  Sender: FDA-Public Use
  Company Number: CN-ROCHE-2613725

PATIENT
  Age: 28 Year
  Sex: Female
  Weight: 57.4 kg

DRUGS (6)
  1. PERJETA [Suspect]
     Active Substance: PERTUZUMAB
     Indication: INVASIVE BREAST CARCINOMA
     Dosage: INITIAL DOES 840MG, MAINTENANCE DOSE 420MG ON DAY1
     Route: 041
     Dates: start: 20200310
  2. GOSERELIN ACETATE [Concomitant]
     Active Substance: GOSERELIN ACETATE
     Indication: CHEMOTHERAPY
     Route: 058
     Dates: start: 20200201
  3. MECAPEGFILGRASTIM [Concomitant]
     Indication: PRODUCT USED FOR UNKNOWN INDICATION
     Route: 058
     Dates: start: 20200401
  4. HERCEPTIN [Suspect]
     Active Substance: TRASTUZUMAB
     Indication: INVASIVE BREAST CARCINOMA
     Dosage: INITIAL DOES 8 MG/KG, MAINTENANCE DOSE 6 MG/KG ON DAY 1
     Route: 041
     Dates: start: 20200310
  5. DOCETAXEL. [Concomitant]
     Active Substance: DOCETAXEL
     Indication: INVASIVE BREAST CARCINOMA
     Dosage: ON DAY2
     Route: 065
     Dates: start: 20200310
  6. CARBOPLATIN. [Concomitant]
     Active Substance: CARBOPLATIN
     Indication: INVASIVE BREAST CARCINOMA
     Dosage: ON DAY2 FOR 6 CYCLES
     Route: 065
     Dates: start: 20200310

REACTIONS (1)
  - Bone marrow failure [Recovered/Resolved]
